FAERS Safety Report 11698376 (Version 1)
Quarter: 2015Q4

REPORT INFORMATION
  Report Type: Spontaneous
  Country: US (occurrence: US)
  Receive Date: 20151104
  Receipt Date: 20151104
  Transmission Date: 20160304
  Serious: No
  Sender: FDA-Public Use
  Company Number: US-ELI_LILLY_AND_COMPANY-US201101000182

PATIENT
  Sex: Female

DRUGS (3)
  1. OXYBUTYNIN [Concomitant]
     Active Substance: OXYBUTYNIN
     Indication: URINARY INCONTINENCE
  2. ESTRACE [Concomitant]
     Active Substance: ESTRADIOL
     Indication: URINARY INCONTINENCE
  3. FORTEO [Suspect]
     Active Substance: TERIPARATIDE
     Indication: OSTEOPOROSIS
     Dosage: 20 UG, DAILY (1/D)
     Dates: start: 20101215

REACTIONS (5)
  - Nausea [Recovered/Resolved]
  - Urinary incontinence [Not Recovered/Not Resolved]
  - Drug dose omission [Unknown]
  - Constipation [Unknown]
  - Headache [Not Recovered/Not Resolved]
